FAERS Safety Report 9567204 (Version 1)
Quarter: 2013Q3

REPORT INFORMATION
  Report Type: Spontaneous
  Country: US (occurrence: US)
  Receive Date: 20130930
  Receipt Date: 20130930
  Transmission Date: 20140515
  Serious: No
  Sender: FDA-Public Use
  Company Number: US-AMGEN-USASP2012061978

PATIENT
  Sex: Female
  Weight: 75.28 kg

DRUGS (2)
  1. ENBREL [Suspect]
     Indication: RHEUMATOID ARTHRITIS
     Dosage: UNK
     Route: 058
  2. SIMPONI [Concomitant]
     Dosage: UNK
     Dates: start: 200909

REACTIONS (1)
  - Therapeutic response decreased [Unknown]
